FAERS Safety Report 7897382-5 (Version None)
Quarter: 2011Q4

REPORT INFORMATION
  Report Type: 
  Country: None (occurrence: None)
  Receive Date: 20111107
  Receipt Date: 20111026
  Transmission Date: 20120403
  Serious: Yes (Disabling)
  Sender: FDA-Public Use
  Company Number: AU-B.I. PHARMACEUTICALS,INC./RIDGEFIELD-2011-AU-02074AU

PATIENT
  Sex: Male
  Weight: 90 kg

DRUGS (4)
  1. PANADOL OSTEO [Concomitant]
  2. COLGOUT [Concomitant]
  3. PRADAXA [Suspect]
     Indication: ATRIAL FIBRILLATION
     Dosage: 220 MG
     Dates: start: 20110815, end: 20110920
  4. METOPROLOL TARTRATE [Concomitant]
     Dosage: 50 MG

REACTIONS (3)
  - RECTAL HAEMORRHAGE [None]
  - CARDIAC FAILURE CHRONIC [None]
  - ANAEMIA [None]
